FAERS Safety Report 8328361-1 (Version None)
Quarter: 2012Q2

REPORT INFORMATION
  Report Type: 
  Country: None (occurrence: None)
  Receive Date: 20120502
  Receipt Date: 20120427
  Transmission Date: 20120825
  Serious: Yes (Other)
  Sender: FDA-Public Use
  Company Number: US-PFIZER INC-2011127438

PATIENT
  Sex: Female
  Weight: 56 kg

DRUGS (14)
  1. ZIAC [Concomitant]
     Dosage: 10-6.25 MG, 1X/DAY
  2. PROTONIX [Suspect]
     Indication: GASTROOESOPHAGEAL REFLUX DISEASE
     Dosage: 20 MG, UNK
     Dates: start: 20050101
  3. OMEPRAZOLE [Suspect]
     Indication: GASTROOESOPHAGEAL REFLUX DISEASE
     Dosage: 20 MG, UNK
     Dates: start: 20091112, end: 20110201
  4. FISH OIL [Concomitant]
     Dosage: 1000 MG, 1X/DAY
  5. MIRENA [Concomitant]
     Dosage: 20 UG, 1X/DAY
  6. BISOPROLOL FUMARATE [Concomitant]
     Dosage: 5 MG, 1X/DAY
  7. CALCIUM [Concomitant]
     Dosage: 600-200MG, 1 TWICE A DAY
  8. LANSOPRAZOLE [Concomitant]
     Dosage: 30 MG, 1X/DAY
  9. CLARITIN [Concomitant]
     Dosage: 10 MG, AS NEEDED
  10. BISOPROLOL FUMARATE AND HYDROCHLOROTHIAZIDE [Suspect]
     Indication: HYPERTENSION
     Dosage: 10/6.25 MG, DAILY, 90DAYS, 3 FILLS
     Dates: end: 20110609
  11. ACIPHEX [Concomitant]
     Dosage: 20 MG, 1X/DAY
  12. VITAMIN D [Concomitant]
     Dosage: 1000 IU, 1X/DAY
  13. LACTOBACILLUS ACIDOPHILUS [Concomitant]
     Indication: HYPERTENSION
     Dosage: 1 DF, 2X/DAY
  14. CALCIUM CITRATE/COLECALCIFEROL/MAGNESIUM CITRATE [Concomitant]
     Dosage: 1200 MG, DAILY

REACTIONS (6)
  - ABDOMINAL PAIN LOWER [None]
  - BACK PAIN [None]
  - CONSTIPATION [None]
  - GASTROENTERITIS BACTERIAL [None]
  - FLATULENCE [None]
  - DYSPEPSIA [None]
